FAERS Safety Report 4439616-5 (Version None)
Quarter: 2004Q3

REPORT INFORMATION
  Report Type: 
  Country: None (occurrence: None)
  Receive Date: 20040901
  Receipt Date: 20040901
  Transmission Date: 20050211
  Serious: Yes (Hospitalization)
  Sender: FDA-Public Use
  Company Number: None

PATIENT
  Sex: Male
  Weight: 77.1115 kg

DRUGS (3)
  1. INSULIN [Suspect]
     Indication: DIABETES MELLITUS
     Dosage: SQ [PRIOR TO ADMISSION]
     Route: 058
  2. NPH INSULIN [Concomitant]
  3. REGULAR INSULIN [Concomitant]

REACTIONS (2)
  - FALL [None]
  - HEAD INJURY [None]
